FAERS Safety Report 24240470 (Version 2)
Quarter: 2024Q4

REPORT INFORMATION
  Report Type: Spontaneous
  Country: FI (occurrence: FI)
  Receive Date: 20240822
  Receipt Date: 20241015
  Transmission Date: 20250115
  Serious: No
  Sender: MYLAN
  Company Number: FI-MYLANLABS-2024M1075446

PATIENT

DRUGS (1)
  1. EPIPEN JR [Suspect]
     Active Substance: EPINEPHRINE
     Indication: Product used for unknown indication
     Dosage: UNK
     Route: 065

REACTIONS (2)
  - Device breakage [None]
  - Product quality issue [None]
